FAERS Safety Report 20951270 (Version 2)
Quarter: 2022Q2

REPORT INFORMATION
  Report Type: Spontaneous
  Country: US (occurrence: US)
  Receive Date: 20220613
  Receipt Date: 20220624
  Transmission Date: 20220721
  Serious: Yes (Hospitalization)
  Sender: FDA-Public Use
  Company Number: US-PFIZER INC-202200804301

PATIENT
  Sex: Female

DRUGS (2)
  1. PAXLOVID [Suspect]
     Active Substance: NIRMATRELVIR\RITONAVIR
     Indication: COVID-19 treatment
     Dosage: UNK
  2. DOFETILIDE [Suspect]
     Active Substance: DOFETILIDE
     Dosage: UNK

REACTIONS (1)
  - Condition aggravated [Unknown]
